FAERS Safety Report 7783058-1 (Version None)
Quarter: 2011Q3

REPORT INFORMATION
  Report Type: 
  Country: None (occurrence: None)
  Receive Date: 20110928
  Receipt Date: 20110923
  Transmission Date: 20111222
  Serious: No
  Sender: FDA-Public Use
  Company Number: US-PFIZER INC-2011227673

PATIENT
  Sex: Female

DRUGS (2)
  1. AZITHROMYCIN [Suspect]
     Indication: UPPER RESPIRATORY TRACT INFECTION
     Dosage: 1 TEASPOONFUL,  X/DAY
     Route: 048
     Dates: start: 20110922, end: 20110922
  2. ALBUTEROL [Concomitant]
     Indication: ASTHMA
     Dosage: UNK
     Route: 045

REACTIONS (3)
  - LETHARGY [None]
  - PSYCHOMOTOR HYPERACTIVITY [None]
  - POOR QUALITY DRUG ADMINISTERED [None]
